FAERS Safety Report 14044344 (Version 2)
Quarter: 2017Q4

REPORT INFORMATION
  Report Type: Spontaneous
  Country: CR (occurrence: CR)
  Receive Date: 20171004
  Receipt Date: 20171006
  Transmission Date: 20180321
  Serious: No
  Sender: FDA-Public Use
  Company Number: CR-BAYER-2017-187425

PATIENT
  Age: 40 Year
  Sex: Female

DRUGS (1)
  1. QLAIRA [Suspect]
     Active Substance: DIENOGEST\ESTRADIOL VALERATE
     Indication: HAEMORRHAGE
     Dosage: UNK
     Route: 048
     Dates: start: 201708

REACTIONS (3)
  - Peripheral swelling [Not Recovered/Not Resolved]
  - Product use in unapproved indication [None]
  - Off label use [Not Recovered/Not Resolved]
